FAERS Safety Report 8529327-9 (Version None)
Quarter: 2012Q3

REPORT INFORMATION
  Report Type: 
  Country: None (occurrence: None)
  Receive Date: 20120723
  Receipt Date: 20120709
  Transmission Date: 20120928
  Serious: No
  Sender: FDA-Public Use
  Company Number: US-JNJFOC-20120705520

PATIENT
  Sex: Female

DRUGS (9)
  1. CALCIUM W/ D-VITAMIN [Concomitant]
     Indication: NUTRITIONAL SUPPORT
     Route: 048
     Dates: start: 20070101
  2. FENTANYL-100 [Suspect]
     Indication: NEUROPATHY PERIPHERAL
     Dosage: NDC 0781-7242-55
     Route: 062
     Dates: start: 20120201
  3. LEVOTHYROXINE SODIUM [Concomitant]
     Indication: HYPOTHYROIDISM
     Route: 048
  4. MULTIVITAMINES [Concomitant]
     Indication: MEDICAL DIET
     Route: 048
  5. FENTANYL-100 [Suspect]
     Indication: COMPLEX REGIONAL PAIN SYNDROME
     Dosage: NDC 0781-7242-55
     Route: 062
     Dates: start: 20120201
  6. WARFARIN SODIUM [Concomitant]
     Dosage: EVERY OTHER DAY
     Route: 048
     Dates: start: 20010101
  7. LISINOPRIL [Concomitant]
     Indication: HYPERTENSION
     Route: 048
     Dates: start: 20010101
  8. WARFARIN SODIUM [Concomitant]
     Indication: COAGULOPATHY
     Dosage: EVERY OTHER DAY
     Route: 048
     Dates: start: 20010101
  9. GLUCOSAMINE CHONDROITIN SULFATE [Concomitant]
     Indication: PRODUCT USED FOR UNKNOWN INDICATION
     Route: 048

REACTIONS (2)
  - WRONG TECHNIQUE IN DRUG USAGE PROCESS [None]
  - PRODUCT QUALITY ISSUE [None]
